FAERS Safety Report 4622681-X (Version None)
Quarter: 2005Q1

REPORT INFORMATION
  Report Type: 
  Country: None (occurrence: None)
  Receive Date: 20050328
  Receipt Date: 20050304
  Transmission Date: 20050727
  Serious: Yes (Hospitalization)
  Sender: FDA-Public Use
  Company Number: MPS1-10344

PATIENT
  Sex: 0

DRUGS (4)
  1. ALDURAZYME [Suspect]
     Indication: MUCOPOLYSACCHARIDOSIS I
     Dosage: 0.58 MG/KG QWK IV
     Route: 042
  2. ALEMTUZUMAB [Concomitant]
  3. FLUDARABINE PHOSPHATE [Concomitant]
  4. TREOSULFAN [Concomitant]

REACTIONS (1)
  - BONE MARROW TRANSPLANT REJECTION [None]
